FAERS Safety Report 6818108-X (Version None)
Quarter: 2010Q3

REPORT INFORMATION
  Report Type: 
  Country: None (occurrence: None)
  Receive Date: 20100706
  Receipt Date: 20100624
  Transmission Date: 20110219
  Serious: Yes (Other)
  Sender: FDA-Public Use
  Company Number: FR-PFIZER INC-2010083797

PATIENT
  Sex: Female

DRUGS (2)
  1. XANAX [Suspect]
     Dosage: 0.25 MG, 2X/DAY
     Route: 048
  2. EFFEXOR [Suspect]
     Dosage: 37.5 MG, 1X/DAY
     Route: 048

REACTIONS (2)
  - METRORRHAGIA [None]
  - UTERINE DISORDER [None]
